FAERS Safety Report 5227795-1 (Version None)
Quarter: 2007Q1

REPORT INFORMATION
  Report Type: 
  Country: None (occurrence: None)
  Receive Date: 20070202
  Receipt Date: 20070122
  Transmission Date: 20070707
  Serious: Yes (Other)
  Sender: FDA-Public Use
  Company Number: CA-PFIZER INC-2007007182

PATIENT
  Age: 12 Year
  Sex: Female

DRUGS (3)
  1. DEPO-PROVERA [Suspect]
     Route: 030
     Dates: start: 20061101, end: 20061101
  2. CALCIUM [Suspect]
  3. VITAMIN D [Concomitant]

REACTIONS (1)
  - BLOOD CALCIUM INCREASED [None]
